FAERS Safety Report 15189826 (Version 8)
Quarter: 2018Q4

REPORT INFORMATION
  Report Type: Spontaneous
  Country: US (occurrence: US)
  Receive Date: 20180724
  Receipt Date: 20181206
  Transmission Date: 20190204
  Serious: Yes (Other)
  Sender: FDA-Public Use
  Company Number: US-PFIZER INC-2018296146

PATIENT
  Age: 72 Year
  Sex: Female
  Weight: 58.5 kg

DRUGS (10)
  1. IBRANCE [Suspect]
     Active Substance: PALBOCICLIB
     Dosage: UNK, CYCLIC (2ND CYCLE LAST NIGHT)
     Dates: start: 20180809
  2. IBRANCE [Suspect]
     Active Substance: PALBOCICLIB
     Dosage: UNK
  3. LETROZOLE. [Concomitant]
     Active Substance: LETROZOLE
     Indication: BREAST CANCER METASTATIC
     Dosage: 2.5 MG, 1X/DAY
     Route: 048
     Dates: start: 20180701
  4. METOPROLOL. [Concomitant]
     Active Substance: METOPROLOL
     Indication: PULSE ABNORMAL
     Dosage: 5 MG, 2X/DAY
     Route: 048
  5. BIOTINE [BIOTIN] [Concomitant]
     Dosage: UNK
  6. IBRANCE [Suspect]
     Active Substance: PALBOCICLIB
     Indication: BREAST CANCER METASTATIC
     Dosage: 100 MG, CYCLIC (ONCE A DAY AT NIGHT FOR 3 WEEKS THEN OFF FOR 1 WEEK))
     Route: 048
     Dates: start: 20180705, end: 20180725
  7. LISINOPRIL. [Concomitant]
     Active Substance: LISINOPRIL
     Indication: BLOOD PRESSURE ABNORMAL
     Dosage: 10 MG, DAILY
     Dates: start: 201807
  8. ZOLPIDEM [Concomitant]
     Active Substance: ZOLPIDEM\ZOLPIDEM TARTRATE
     Dosage: UNK, 1X/DAY (AT NIGHT)
  9. IBRANCE [Suspect]
     Active Substance: PALBOCICLIB
     Dosage: 75 MG, CYCLIC (AT NIGHT FOR 3 WEEKS THEN OFF FOR 1 WEEK)
     Route: 048
  10. FEMARA [Concomitant]
     Active Substance: LETROZOLE

REACTIONS (16)
  - Epistaxis [Unknown]
  - Red blood cell count decreased [Unknown]
  - Neutropenia [Unknown]
  - Hot flush [Unknown]
  - Abnormal faeces [Unknown]
  - Oropharyngeal pain [Unknown]
  - Platelet count decreased [Unknown]
  - Anxiety [Unknown]
  - Pre-existing condition improved [Unknown]
  - Diarrhoea [Unknown]
  - Nasal discomfort [Unknown]
  - White blood cell count decreased [Recovered/Resolved]
  - Rhinorrhoea [Unknown]
  - Dry mouth [Unknown]
  - Flatulence [Unknown]
  - Therapeutic response unexpected [Unknown]

NARRATIVE: CASE EVENT DATE: 2018
